FAERS Safety Report 4788290-7 (Version None)
Quarter: 2005Q4

REPORT INFORMATION
  Report Type: 
  Country: None (occurrence: None)
  Receive Date: 20051003
  Receipt Date: 20050923
  Transmission Date: 20060501
  Serious: Yes (Death, Hospitalization)
  Sender: FDA-Public Use
  Company Number: 2005-09-0329

PATIENT
  Age: 75 Year
  Sex: Female
  Weight: 60 kg

DRUGS (2)
  1. TEMODAL [Suspect]
     Indication: GLIOSARCOMA
     Dosage: 75 MG/M^2 ORAL
     Route: 048
     Dates: start: 20050712, end: 20050812
  2. RADIATION THERAPY [Concomitant]

REACTIONS (8)
  - CARDIAC FAILURE [None]
  - GENERAL PHYSICAL HEALTH DETERIORATION [None]
  - LUNG INFILTRATION [None]
  - PANCYTOPENIA [None]
  - PLEURAL EFFUSION [None]
  - PNEUMONIA [None]
  - RESPIRATORY FAILURE [None]
  - SUBILEUS [None]
